FAERS Safety Report 5242379-7 (Version None)
Quarter: 2007Q1

REPORT INFORMATION
  Report Type: 
  Country: None (occurrence: None)
  Receive Date: 20070216
  Receipt Date: 20070216
  Transmission Date: 20070707
  Serious: No
  Sender: FDA-Public Use
  Company Number: None

PATIENT
  Age: 37 Year
  Sex: Male
  Weight: 140.6151 kg

DRUGS (1)
  1. ZYPREXA [Suspect]
     Indication: ANXIETY
     Dosage: DAILY ONCE PO
     Route: 048
     Dates: start: 20070201, end: 20070208

REACTIONS (1)
  - VISUAL DISTURBANCE [None]
